FAERS Safety Report 6561292-6 (Version None)
Quarter: 2010Q1

REPORT INFORMATION
  Report Type: 
  Country: None (occurrence: None)
  Receive Date: 20100130
  Receipt Date: 20091005
  Transmission Date: 20100710
  Serious: No
  Sender: FDA-Public Use
  Company Number: US-ABBOTT-09P-163-0601637-00

PATIENT
  Sex: Male

DRUGS (1)
  1. HUMIRA [Suspect]
     Indication: RHEUMATOID ARTHRITIS
     Route: 058
     Dates: start: 20090901

REACTIONS (5)
  - ARTHRALGIA [None]
  - DRUG INEFFECTIVE [None]
  - ONYCHOMADESIS [None]
  - PAIN IN EXTREMITY [None]
  - RASH [None]
